FAERS Safety Report 11654992 (Version 1)
Quarter: 2015Q4

REPORT INFORMATION
  Report Type: Spontaneous
  Country: SA (occurrence: SA)
  Receive Date: 20151023
  Receipt Date: 20151023
  Transmission Date: 20160304
  Serious: Yes (Hospitalization, Other)
  Sender: FDA-Public Use
  Company Number: SA-WATSON-2015-11561

PATIENT
  Age: 14 Month
  Sex: Male
  Weight: 10 kg

DRUGS (1)
  1. MAPROTILINE (UNKNOWN) [Suspect]
     Active Substance: MAPROTILINE
     Indication: ACCIDENTAL EXPOSURE TO PRODUCT BY CHILD
     Dosage: UNK, SINGLE
     Route: 048

REACTIONS (15)
  - Tachycardia [Recovered/Resolved]
  - Mydriasis [Recovered/Resolved]
  - Agitation [Recovered/Resolved]
  - Musculoskeletal stiffness [None]
  - Urine output decreased [Recovered/Resolved]
  - Accidental exposure to product by child [Recovered/Resolved]
  - Eye movement disorder [Recovered/Resolved]
  - Opisthotonus [Recovered/Resolved]
  - Somnolence [Recovered/Resolved]
  - Generalised tonic-clonic seizure [Recovered/Resolved]
  - Lethargy [Recovered/Resolved]
  - Staring [Recovered/Resolved]
  - Atrioventricular block first degree [Recovered/Resolved]
  - Respiratory rate increased [Recovered/Resolved]
  - Musculoskeletal stiffness [Recovered/Resolved]
